FAERS Safety Report 17391150 (Version 1)
Quarter: 2020Q1

REPORT INFORMATION
  Report Type: Spontaneous
  Country: JP (occurrence: JP)
  Receive Date: 20200207
  Receipt Date: 20200207
  Transmission Date: 20200409
  Serious: Yes (Other)
  Sender: FDA-Public Use
  Company Number: JP-ALLERGAN-2001180US

PATIENT
  Sex: Male

DRUGS (4)
  1. ALPHAGAN P [Suspect]
     Active Substance: BRIMONIDINE TARTRATE
     Indication: GLAUCOMA
     Dosage: 2 GTT, BID
     Route: 047
     Dates: start: 20150625, end: 20191125
  2. AZORGA [Concomitant]
     Active Substance: BRINZOLAMIDE\TIMOLOL MALEATE
     Dosage: UNK
     Dates: start: 20141016, end: 201912
  3. XALATAN [Concomitant]
     Active Substance: LATANOPROST
     Dosage: UNK
     Dates: start: 20150129, end: 20160525
  4. LUMIGAN [Suspect]
     Active Substance: BIMATOPROST
     Indication: GLAUCOMA
     Dosage: 2 GTT, QD
     Route: 047
     Dates: start: 20160526, end: 201912

REACTIONS (4)
  - Visual acuity reduced [Unknown]
  - Corneal opacity [Unknown]
  - Hyperaemia [Unknown]
  - Corneal neovascularisation [Unknown]

NARRATIVE: CASE EVENT DATE: 20190408
